FAERS Safety Report 4863472-4 (Version None)
Quarter: 2005Q4

REPORT INFORMATION
  Report Type: 
  Country: None (occurrence: None)
  Receive Date: 20051222
  Receipt Date: 20050218
  Transmission Date: 20060501
  Serious: No
  Sender: FDA-Public Use
  Company Number: US-GLAXOSMITHKLINE-A0546298A

PATIENT
  Age: 52 Year
  Sex: Female

DRUGS (3)
  1. FLONASE [Suspect]
     Indication: RHINITIS
     Dosage: 2SPR PER DAY
     Route: 045
     Dates: start: 20010101, end: 20030101
  2. ADVAIR DISKUS 250/50 [Concomitant]
  3. ASTELIN [Concomitant]

REACTIONS (1)
  - DRUG INEFFECTIVE [None]
